FAERS Safety Report 12482440 (Version 1)
Quarter: 2016Q2

REPORT INFORMATION
  Report Type: Spontaneous
  Country: US (occurrence: US)
  Receive Date: 20160620
  Receipt Date: 20160620
  Transmission Date: 20160815
  Serious: Yes (Hospitalization)
  Sender: FDA-Public Use
  Company Number: US-MYLANLABS-2016M1025195

PATIENT

DRUGS (5)
  1. BENZATHINE BENZYLPENICILLIN [Interacting]
     Active Substance: PENICILLIN G BENZATHINE
     Indication: NEUROSYPHILIS
     Dosage: 2.4 MILLION UNITS
     Route: 030
  2. PROBENECID. [Suspect]
     Active Substance: PROBENECID
     Indication: PRODUCT USED FOR UNKNOWN INDICATION
     Dosage: RECEIVED 2 DOSES
     Route: 065
  3. BENZYLPENICILLIN [Interacting]
     Active Substance: PENICILLIN G
     Indication: NEUROSYPHILIS
     Route: 042
  4. CEFTRIAXONE. [Concomitant]
     Active Substance: CEFTRIAXONE
     Indication: PRODUCT USED FOR UNKNOWN INDICATION
     Route: 065
  5. VANCOMYCIN [Concomitant]
     Active Substance: VANCOMYCIN
     Indication: PRODUCT USED FOR UNKNOWN INDICATION
     Route: 065

REACTIONS (2)
  - Labelled drug-drug interaction medication error [Recovered/Resolved]
  - Toxic encephalopathy [Recovered/Resolved]
